FAERS Safety Report 21043222 (Version 1)
Quarter: 2022Q3

REPORT INFORMATION
  Report Type: Spontaneous
  Country: US (occurrence: US)
  Receive Date: 20220705
  Receipt Date: 20220705
  Transmission Date: 20221027
  Serious: Yes (Other)
  Sender: FDA-Public Use
  Company Number: US-BRISTOL-MYERS SQUIBB COMPANY-2022-063458

PATIENT
  Age: 71 Year
  Sex: Male

DRUGS (1)
  1. POMALYST [Suspect]
     Active Substance: POMALIDOMIDE
     Indication: Product used for unknown indication
     Dosage: EVERY DAY ON DAYS 1-21 OF A 28 DAY CYCLE
     Route: 048

REACTIONS (3)
  - Dyspnoea [Unknown]
  - Peripheral swelling [Unknown]
  - Thrombosis [Unknown]
